FAERS Safety Report 6800019-7 (Version None)
Quarter: 2010Q2

REPORT INFORMATION
  Report Type: 
  Country: None (occurrence: None)
  Receive Date: 20100617
  Receipt Date: 20100610
  Transmission Date: 20101027
  Serious: Yes (Other)
  Sender: FDA-Public Use
  Company Number: 2010SP033112

PATIENT
  Age: 35 Year
  Sex: Female

DRUGS (6)
  1. REFLEX (MIRTAZAPINE /01293201/) [Suspect]
     Indication: DRUG USE FOR UNKNOWN INDICATION
     Dosage: 15 MG;ONCE;PO 7.5 MG;QD;PO
     Route: 048
  2. FLUNITRAZEPAM [Concomitant]
  3. ZOLPIDEM TARTRATE [Concomitant]
  4. LEVOMEPROMAZINE [Concomitant]
  5. BROMAZEPAM [Concomitant]
  6. LUVOX [Concomitant]

REACTIONS (3)
  - CONVULSION [None]
  - DYSARTHRIA [None]
  - FACIAL PALSY [None]
